FAERS Safety Report 19497249 (Version 1)
Quarter: 2021Q3

REPORT INFORMATION
  Report Type: Report from Study
  Country: US (occurrence: US)
  Receive Date: 20210706
  Receipt Date: 20210706
  Transmission Date: 20211014
  Serious: Yes (Other)
  Sender: FDA-Public Use
  Company Number: NVSC2021US143394

PATIENT
  Sex: Male

DRUGS (4)
  1. ENTRESTO [Suspect]
     Active Substance: SACUBITRIL\VALSARTAN
     Indication: CARDIAC FAILURE
     Dosage: 50 MG, BID (24/26MG)
     Route: 048
     Dates: start: 20210427
  2. ELIQUIS [Suspect]
     Active Substance: APIXABAN
     Indication: PRODUCT USED FOR UNKNOWN INDICATION
     Dosage: UNK, STOP DATE WAS LAST WED (1 WEEK AGO)
     Route: 065
  3. ENTRESTO [Suspect]
     Active Substance: SACUBITRIL\VALSARTAN
     Dosage: UNK UNK, QD
     Route: 048
  4. LASIX [Suspect]
     Active Substance: FUROSEMIDE
     Indication: PRODUCT USED FOR UNKNOWN INDICATION
     Dosage: UNK
     Route: 065

REACTIONS (11)
  - Blood pressure decreased [Unknown]
  - Throat clearing [Unknown]
  - Depression [Recovering/Resolving]
  - Memory impairment [Unknown]
  - Dizziness [Unknown]
  - Inappropriate schedule of product administration [Recovering/Resolving]
  - Drug ineffective [Unknown]
  - Feeling abnormal [Recovering/Resolving]
  - Suicidal ideation [Recovering/Resolving]
  - Dysphemia [Unknown]
  - Stress [Unknown]
